FAERS Safety Report 9554096 (Version 1)
Quarter: 2013Q3

REPORT INFORMATION
  Report Type: Report from Study
  Country: BR (occurrence: BR)
  Receive Date: 20130925
  Receipt Date: 20130925
  Transmission Date: 20140515
  Serious: Yes (Other)
  Sender: FDA-Public Use
  Company Number: PHHY2013BR105424

PATIENT
  Sex: Female

DRUGS (1)
  1. METFORMIN SANDOZ [Suspect]
     Indication: DIABETES MELLITUS
     Dosage: 500 MG, Q12H

REACTIONS (2)
  - Visual impairment [Unknown]
  - Cataract [Unknown]
